FAERS Safety Report 7439094-8 (Version None)
Quarter: 2011Q2

REPORT INFORMATION
  Report Type: 
  Country: None (occurrence: None)
  Receive Date: 20110427
  Receipt Date: 20110420
  Transmission Date: 20111010
  Serious: Yes (Hospitalization)
  Sender: FDA-Public Use
  Company Number: BR-ELI_LILLY_AND_COMPANY-BR201104006725

PATIENT
  Sex: Female
  Weight: 60 kg

DRUGS (6)
  1. HUMALOG MIX 75/25 [Suspect]
     Dosage: 20 IU, BID
     Route: 058
  2. RASILEZ [Concomitant]
     Dosage: 300 MG, QD
     Route: 065
  3. HUMALOG MIX 75/25 [Suspect]
     Indication: TYPE 2 DIABETES MELLITUS
     Dosage: 13 IU, BID
     Route: 058
     Dates: start: 20110412
  4. SINVASTATINA [Concomitant]
     Dosage: 20 MG, QD
     Route: 065
  5. HUMALOG MIX 75/25 [Suspect]
     Dosage: 18 IU, BID
     Route: 058
  6. APROVEL [Concomitant]
     Dosage: 30 MG, QD
     Route: 065

REACTIONS (2)
  - HYPERGLYCAEMIA [None]
  - HYPERTENSION [None]
